FAERS Safety Report 12920151 (Version 1)
Quarter: 2016Q4

REPORT INFORMATION
  Report Type: Spontaneous
  Country: US (occurrence: US)
  Receive Date: 20161104
  Receipt Date: 20161104
  Transmission Date: 20170207
  Serious: Yes (Life-Threatening, Other)
  Sender: FDA-Public Use
  Company Number: None

PATIENT
  Age: 47 Year
  Sex: Male
  Weight: 88.45 kg

DRUGS (1)
  1. ERTHROMYCIN DR TABLET [Suspect]
     Active Substance: ERYTHROMYCIN
     Indication: PHARYNGITIS
     Route: 048
     Dates: start: 20161004, end: 20161014

REACTIONS (3)
  - Skin exfoliation [None]
  - Blister rupture [None]
  - Toxic epidermal necrolysis [None]

NARRATIVE: CASE EVENT DATE: 20161101
